FAERS Safety Report 4936695-3 (Version None)
Quarter: 2006Q1

REPORT INFORMATION
  Report Type: 
  Country: None (occurrence: None)
  Receive Date: 20060303
  Receipt Date: 20060215
  Transmission Date: 20060701
  Serious: Yes (Death, Life-Threatening, Hospitalization)
  Sender: FDA-Public Use
  Company Number: DSA_27793_2006

PATIENT
  Age: 87 Year
  Sex: Female

DRUGS (14)
  1. ENALAPRIL MALEATE [Suspect]
     Indication: HYPERTENSION
     Dosage: 20 MG Q DAY PO
     Route: 048
     Dates: start: 20051021, end: 20051219
  2. TETRAZEPAM [Suspect]
     Dosage: DF PO
     Route: 048
     Dates: start: 20051116, end: 20051206
  3. TRAMADOL HYDROCHLORIDE AND ACETAMINOPHEN [Suspect]
     Indication: OSTEOARTHRITIS
     Dosage: DF PO
     Route: 048
     Dates: start: 20051021, end: 20051206
  4. IBUPROFEN [Suspect]
     Indication: OSTEOARTHRITIS
     Dosage: 200 MG QID PO
     Route: 048
     Dates: start: 20051209, end: 20051219
  5. CIPROFIBRATE [Suspect]
     Indication: LIPID METABOLISM DISORDER
     Dosage: 200 MG Q DAY PO
     Route: 048
     Dates: start: 20051206, end: 20051219
  6. PANTOPRAZOLE SODIUM [Suspect]
     Indication: PROPHYLAXIS
     Dosage: 20 MG BID PO
     Route: 048
     Dates: start: 20051206, end: 20051226
  7. CALCIUM CARBONATE + CHOLECALCIFEROL [Concomitant]
  8. CHONDROITIN SULFATE SODIUM [Concomitant]
  9. DESLORATADINE [Concomitant]
  10. DOMPERIDONE [Concomitant]
  11. HYDROXYZINE HYDROCHLORIDE [Concomitant]
  12. LACIDIPINE [Concomitant]
  13. RISEDRONATE SODIUM [Concomitant]
  14. TRAMADOL HCL [Concomitant]

REACTIONS (2)
  - LUNG INFECTION [None]
  - TOXIC EPIDERMAL NECROLYSIS [None]
